FAERS Safety Report 7728359-8 (Version None)
Quarter: 2011Q3

REPORT INFORMATION
  Report Type: 
  Country: None (occurrence: None)
  Receive Date: 20110905
  Receipt Date: 20110901
  Transmission Date: 20111222
  Serious: Yes (Other)
  Sender: FDA-Public Use
  Company Number: PHEH2010US03398

PATIENT
  Sex: Female

DRUGS (15)
  1. OMEPRAZOLE [Concomitant]
  2. ZOMETA [Suspect]
     Indication: MULTIPLE MYELOMA
     Dosage: 4 MG, QMO
     Route: 042
     Dates: start: 20070501
  3. CLONAZEPAM [Concomitant]
  4. COUMADIN [Concomitant]
  5. METOPROLOL [Concomitant]
  6. ACTOS [Concomitant]
  7. SIMVASTATIN [Concomitant]
  8. PERIDEX [Concomitant]
  9. REVLIMID [Concomitant]
  10. HYDROCHLOROTHIAZIDE [Concomitant]
  11. LORAZEPAM [Concomitant]
     Dosage: 50 MG, UNK
  12. GLIPIZIDE [Concomitant]
  13. DEPO-MEDROL [Concomitant]
  14. LIDOCAINE [Concomitant]
  15. LEXAPRO [Concomitant]
     Dosage: 10 MG, QD

REACTIONS (36)
  - SOFT TISSUE DISORDER [None]
  - CHEST PAIN [None]
  - TYPE 2 DIABETES MELLITUS [None]
  - DECREASED INTEREST [None]
  - EXPOSED BONE IN JAW [None]
  - ARTHRITIS [None]
  - HYPOAESTHESIA [None]
  - BENIGN BREAST NEOPLASM [None]
  - ANAEMIA [None]
  - EXOSTOSIS [None]
  - SEPSIS [None]
  - HYPOVOLAEMIA [None]
  - PAIN [None]
  - INTERVERTEBRAL DISC DEGENERATION [None]
  - PULMONARY EMBOLISM [None]
  - PARAESTHESIA [None]
  - SINUS TACHYCARDIA [None]
  - NEPHROLITHIASIS [None]
  - OSTEOLYSIS [None]
  - BACK PAIN [None]
  - DEEP VEIN THROMBOSIS [None]
  - ANXIETY [None]
  - TOOTH DISCOLOURATION [None]
  - FLANK PAIN [None]
  - BLOOD CHOLESTEROL INCREASED [None]
  - GENERAL PHYSICAL HEALTH DETERIORATION [None]
  - PANIC ATTACK [None]
  - INFECTION [None]
  - FACET JOINT SYNDROME [None]
  - OSTEONECROSIS OF JAW [None]
  - OSTEOPOROSIS [None]
  - PAIN IN EXTREMITY [None]
  - NEUROPATHY PERIPHERAL [None]
  - SPINAL OSTEOARTHRITIS [None]
  - HAEMATURIA [None]
  - INTERVERTEBRAL DISC PROTRUSION [None]
